FAERS Safety Report 4751178-1 (Version None)
Quarter: 2005Q3

REPORT INFORMATION
  Report Type: 
  Country: None (occurrence: None)
  Receive Date: 20050822
  Receipt Date: 20050811
  Transmission Date: 20060218
  Serious: Yes (Hospitalization)
  Sender: FDA-Public Use
  Company Number: FRP05000636

PATIENT
  Age: 44 Year
  Sex: Male
  Weight: 75 kg

DRUGS (5)
  1. ACTONEL [Suspect]
     Dosage: 35 MG, 1 /WEEK, ORAL
     Route: 048
     Dates: start: 20050610
  2. CORTANCYL(PREDNISONE) [Suspect]
     Indication: UVEITIS
     Dosage: 60 MG, DAILY, ORAL
     Route: 048
     Dates: start: 20050610
  3. RIMIFON [Suspect]
     Dosage: 300 MG,DAILY , ORAL
     Route: 048
  4. OMEPRAZOLE [Suspect]
     Dosage: 20 MG, DAILY, ORAL
     Route: 048
     Dates: start: 20050610
  5. ATACAND [Suspect]
     Indication: HYPERTENSION
     Dosage: 8 MG, DAILY, ORAL
     Route: 048
     Dates: start: 20050610

REACTIONS (4)
  - CEREBRAL VENOUS THROMBOSIS [None]
  - EPILEPSY [None]
  - HEADACHE [None]
  - SUBDURAL HAEMATOMA [None]
